FAERS Safety Report 25857878 (Version 1)
Quarter: 2025Q3

REPORT INFORMATION
  Report Type: Spontaneous
  Country: EU (occurrence: EU)
  Receive Date: 20250929
  Receipt Date: 20250929
  Transmission Date: 20251020
  Serious: Yes (Other)
  Sender: ALKEM
  Company Number: None

PATIENT
  Age: 26 Year
  Sex: Male
  Weight: 80 kg

DRUGS (1)
  1. TAMSULOSIN HYDROCHLORIDE [Suspect]
     Active Substance: TAMSULOSIN HYDROCHLORIDE
     Indication: Nephrolithiasis
     Route: 048
     Dates: start: 20250210, end: 20250220

REACTIONS (1)
  - Haemangioma [Recovered/Resolved with Sequelae]

NARRATIVE: CASE EVENT DATE: 20250410
